FAERS Safety Report 5198917-6 (Version None)
Quarter: 2006Q4

REPORT INFORMATION
  Report Type: 
  Country: None (occurrence: None)
  Receive Date: 20060925
  Receipt Date: 20060316
  Transmission Date: 20070319
  Serious: Yes (Hospitalization)
  Sender: FDA-Public Use
  Company Number: US-JNJFOC-20060304659

PATIENT
  Age: 56 Year
  Sex: Male

DRUGS (8)
  1. CONCERTA [Suspect]
     Indication: ATTENTION DEFICIT/HYPERACTIVITY DISORDER
     Dosage: 18 MG, IN 1 DAY, ORAL
     Route: 048
  2. PREDNISONE TAB [Concomitant]
  3. MOBIC [Concomitant]
  4. FLEXERIL [Concomitant]
  5. DARVOCET [Concomitant]
  6. DOXAZICON (ALL OTHER THERAPEUTIC PRODUCTS) [Concomitant]
  7. ASPIRIN [Concomitant]
  8. MOTRIN [Concomitant]

REACTIONS (1)
  - PALPITATIONS [None]
